FAERS Safety Report 15605268 (Version 1)
Quarter: 2018Q4

REPORT INFORMATION
  Report Type: Other
  Country: DE (occurrence: DE)
  Receive Date: 20181112
  Receipt Date: 20181112
  Transmission Date: 20190205
  Serious: Yes (Death, Hospitalization, Other)
  Sender: FDA-Public Use
  Company Number: DE-ACCORD-091436

PATIENT
  Age: 3 Year
  Sex: Male

DRUGS (6)
  1. ETOPOSIDE/ETOPOSIDE PHOSPHATE [Concomitant]
  2. MERCAPTOPURINE/MERCAPTOPURINE ANHYDROUS [Suspect]
     Active Substance: MERCAPTOPURINE
     Indication: ACUTE LYMPHOCYTIC LEUKAEMIA
     Route: 048
  3. DOXORUBICIN [Concomitant]
     Active Substance: DOXORUBICIN
  4. METHOTREXATE. [Suspect]
     Active Substance: METHOTREXATE
     Indication: ACUTE LYMPHOCYTIC LEUKAEMIA
  5. CISPLATIN. [Concomitant]
     Active Substance: CISPLATIN
  6. LYSODREN [Concomitant]
     Active Substance: MITOTANE

REACTIONS (4)
  - Rectal haemorrhage [Unknown]
  - Adrenocortical carcinoma [Fatal]
  - Epistaxis [Unknown]
  - Metastases to lung [Fatal]
